FAERS Safety Report 19476933 (Version 2)
Quarter: 2022Q1

REPORT INFORMATION
  Report Type: Spontaneous
  Country: US (occurrence: US)
  Receive Date: 20210630
  Receipt Date: 20220303
  Transmission Date: 20220423
  Serious: No
  Sender: FDA-Public Use
  Company Number: US-PFIZER INC-2021668456

PATIENT
  Age: 46 Year
  Sex: Male

DRUGS (1)
  1. XELJANZ XR [Suspect]
     Active Substance: TOFACITINIB CITRATE
     Dosage: 11 MG, DAILY
     Route: 048
     Dates: start: 20210421, end: 20210625

REACTIONS (7)
  - Product dose omission issue [Unknown]
  - Diarrhoea [Recovering/Resolving]
  - Depression [Recovered/Resolved]
  - Fatigue [Recovered/Resolved]
  - Swollen tongue [Unknown]
  - Dizziness [Unknown]
  - Feeling abnormal [Unknown]
